FAERS Safety Report 10204540 (Version 1)
Quarter: 2014Q2

REPORT INFORMATION
  Report Type: Spontaneous
  Country: US (occurrence: US)
  Receive Date: 20140529
  Receipt Date: 20140529
  Transmission Date: 20141212
  Serious: No
  Sender: FDA-Public Use
  Company Number: US-SANOFI-AVENTIS-2013SA064592

PATIENT
  Sex: Female

DRUGS (3)
  1. LANTUS [Suspect]
     Dosage: DOSE:5 UNIT(S)
  2. HUMALOG [Suspect]
     Dosage: DOSE:3 UNIT(S)
  3. CLOMID [Suspect]

REACTIONS (1)
  - Hypoglycaemia [Unknown]
